FAERS Safety Report 9719818 (Version 1)
Quarter: 2013Q4

REPORT INFORMATION
  Report Type: Spontaneous
  Country: US (occurrence: US)
  Receive Date: 20131128
  Receipt Date: 20131128
  Transmission Date: 20140711
  Serious: Yes (Other)
  Sender: FDA-Public Use
  Company Number: US-RB-060358-13

PATIENT
  Age: 65 Year
  Sex: Female

DRUGS (3)
  1. MUCINEX MAXIMUM STRENGTH [Suspect]
     Indication: PNEUMONIA
     Dosage: 1 TABLET PER DAY
     Route: 048
     Dates: start: 20131108
  2. MUCINEX MAXIMUM STRENGTH [Suspect]
     Indication: PNEUMONIA
     Dosage: 1 TABLET PER DAY
     Route: 048
     Dates: start: 20131108
  3. ALBUTEROL [Concomitant]
     Indication: PRODUCT USED FOR UNKNOWN INDICATION
     Dosage: UNKNOWN

REACTIONS (4)
  - Fluid retention [Not Recovered/Not Resolved]
  - Oedema peripheral [Not Recovered/Not Resolved]
  - Incorrect drug administration duration [Not Recovered/Not Resolved]
  - Off label use [Not Recovered/Not Resolved]
